FAERS Safety Report 8213796-8 (Version None)
Quarter: 2012Q1

REPORT INFORMATION
  Report Type: 
  Country: None (occurrence: None)
  Receive Date: 20120316
  Receipt Date: 20120312
  Transmission Date: 20120608
  Serious: Yes (Hospitalization, Other)
  Sender: FDA-Public Use
  Company Number: NL-BIOGENIDEC-2011BI039874

PATIENT
  Age: 41 Year
  Sex: Male

DRUGS (3)
  1. AMANTADINE HCL [Concomitant]
  2. AMITRIPTYLINE HCL [Concomitant]
  3. TYSABRI [Suspect]
     Indication: MULTIPLE SCLEROSIS
     Route: 042
     Dates: start: 20091221, end: 20110905

REACTIONS (2)
  - LUNG DISORDER [None]
  - TESTIS CANCER [None]
